FAERS Safety Report 6729695-4 (Version None)
Quarter: 2010Q2

REPORT INFORMATION
  Report Type: 
  Country: None (occurrence: None)
  Receive Date: 20100512
  Receipt Date: 20100426
  Transmission Date: 20101027
  Serious: Yes (Death)
  Sender: FDA-Public Use
  Company Number: JPI-P-010516

PATIENT
  Age: 81 Year
  Sex: Male

DRUGS (1)
  1. XYREM [Suspect]
     Dosage: 4.5 GM (2.25 GM, 2 IN 1 D), ORAL; 7.5 GM (3.75 GM, 2 IN 1 D), ORAL
     Route: 048
     Dates: start: 20060531

REACTIONS (1)
  - DEATH [None]
